FAERS Safety Report 16769858 (Version 4)
Quarter: 2020Q1

REPORT INFORMATION
  Report Type: Spontaneous
  Country: US (occurrence: US)
  Receive Date: 20190904
  Receipt Date: 20200131
  Transmission Date: 20200409
  Serious: No
  Sender: FDA-Public Use
  Company Number: US-AMGEN-USASP2019140453

PATIENT
  Age: 72 Year
  Sex: Female
  Weight: 62.13 kg

DRUGS (3)
  1. NEULASTA [Suspect]
     Active Substance: PEGFILGRASTIM
     Dosage: 300 MICROGRAM
     Route: 065
  2. NEULASTA [Suspect]
     Active Substance: PEGFILGRASTIM
     Indication: NEUTROPENIA
     Dosage: 300 MICROGRAM
     Route: 065
  3. NEULASTA [Suspect]
     Active Substance: PEGFILGRASTIM
     Dosage: 300 MICROGRAM
     Route: 065

REACTIONS (3)
  - Incorrect dose administered by device [Unknown]
  - Application site haemorrhage [Unknown]
  - Device occlusion [Unknown]

NARRATIVE: CASE EVENT DATE: 20190828
